FAERS Safety Report 19418745 (Version 1)
Quarter: 2021Q2

REPORT INFORMATION
  Report Type: Spontaneous
  Country: AU (occurrence: AU)
  Receive Date: 20210615
  Receipt Date: 20210615
  Transmission Date: 20210717
  Serious: Yes (Hospitalization)
  Sender: FDA-Public Use
  Company Number: AU-TASMAN PHARMA, INC.-2021TSM00037

PATIENT
  Sex: Male

DRUGS (16)
  1. CLOZAPINE. [Suspect]
     Active Substance: CLOZAPINE
     Dosage: 750 MG
     Dates: start: 20210223, end: 20210509
  2. CLOZAPINE. [Suspect]
     Active Substance: CLOZAPINE
     Dosage: 650 MG
     Dates: start: 20210202, end: 20210215
  3. CLOZAPINE. [Suspect]
     Active Substance: CLOZAPINE
     Dosage: 450 MG
     Dates: start: 20200205, end: 20200310
  4. CLOZAPINE. [Suspect]
     Active Substance: CLOZAPINE
     Dosage: 650 MG
     Dates: start: 20201111, end: 20201130
  5. CLOZAPINE. [Suspect]
     Active Substance: CLOZAPINE
     Dosage: 550 MG
     Dates: start: 20200525, end: 20200709
  6. CLOZAPINE. [Suspect]
     Active Substance: CLOZAPINE
     Dosage: 250 MG
     Dates: start: 20210527
  7. CLOZAPINE. [Suspect]
     Active Substance: CLOZAPINE
     Dosage: 450 MG
     Dates: start: 20200128, end: 20200204
  8. CLOZAPINE. [Suspect]
     Active Substance: CLOZAPINE
     Dosage: 700 MG
     Dates: start: 20210216, end: 20210222
  9. CLOZAPINE. [Suspect]
     Active Substance: CLOZAPINE
     Dosage: 650 MG
     Dates: start: 20200923, end: 20201110
  10. CLOZAPINE. [Suspect]
     Active Substance: CLOZAPINE
     Dosage: 500 MG
     Dates: start: 20200311, end: 20200504
  11. CLOZAPINE. [Suspect]
     Active Substance: CLOZAPINE
     Dosage: 600 MG
     Dates: start: 20200710, end: 20200922
  12. CLOZAPINE. [Concomitant]
     Active Substance: CLOZAPINE
     Dosage: 400 MG
     Dates: start: 20200107, end: 20200127
  13. CLOZAPINE. [Suspect]
     Active Substance: CLOZAPINE
     Dosage: 650 MG
     Dates: start: 20201201, end: 20210201
  14. CLOZAPINE. [Suspect]
     Active Substance: CLOZAPINE
     Dosage: 400 MG
     Dates: start: 20191217, end: 20200106
  15. CLOZAPINE. [Suspect]
     Active Substance: CLOZAPINE
     Dosage: 525 MG
     Dates: start: 20200505, end: 20200524
  16. CLOZAPINE. [Concomitant]
     Active Substance: CLOZAPINE
     Dosage: 750 MG
     Dates: start: 20210510, end: 20210526

REACTIONS (2)
  - Product dose omission issue [Recovered/Resolved]
  - Hospitalisation [Unknown]

NARRATIVE: CASE EVENT DATE: 20200319
